FAERS Safety Report 9775134 (Version 2)
Quarter: 2015Q3

REPORT INFORMATION
  Report Type: Spontaneous
  Country: US (occurrence: US)
  Receive Date: 20131220
  Receipt Date: 20150721
  Transmission Date: 20151125
  Serious: Yes (Other)
  Sender: FDA-Public Use
  Company Number: US-GILEAD-2010-0027610

PATIENT
  Age: 34 Year
  Sex: Male

DRUGS (4)
  1. ACYCLOVIR. [Concomitant]
     Active Substance: ACYCLOVIR
     Route: 042
  2. VISTIDE [Suspect]
     Active Substance: CIDOFOVIR
     Indication: HERPES SIMPLEX
     Route: 042
  3. VANCOMYCIN HYDROCHLORIDE. [Concomitant]
     Active Substance: VANCOMYCIN HYDROCHLORIDE
  4. VISTIDE [Suspect]
     Active Substance: CIDOFOVIR
     Route: 026

REACTIONS (1)
  - Nephropathy toxic [Unknown]
